FAERS Safety Report 19193941 (Version 1)
Quarter: 2021Q2

REPORT INFORMATION
  Report Type: Spontaneous
  Country: US (occurrence: US)
  Receive Date: 20210429
  Receipt Date: 20210429
  Transmission Date: 20210717
  Serious: No
  Sender: FDA-Public Use
  Company Number: US-GLENMARK PHARMACEUTICALS-2021GMK052002

PATIENT

DRUGS (1)
  1. CLOTRIMAZOLE AND BETAMETHASONE DIPROPIONATE CREAM USP, 1%/0.05% (BASE) [Suspect]
     Active Substance: BETAMETHASONE DIPROPIONATE\CLOTRIMAZOLE
     Indication: VULVOVAGINAL DISCOMFORT
     Dosage: UNK
     Route: 061
     Dates: start: 20210131, end: 20210131

REACTIONS (2)
  - Drug ineffective [Unknown]
  - Application site pain [Recovered/Resolved]

NARRATIVE: CASE EVENT DATE: 20210131
